FAERS Safety Report 8152656-8 (Version None)
Quarter: 2012Q1

REPORT INFORMATION
  Report Type: 
  Country: None (occurrence: None)
  Receive Date: 20120221
  Receipt Date: 20120215
  Transmission Date: 20120608
  Serious: Yes (Disabling)
  Sender: FDA-Public Use
  Company Number: GR-AMGEN-GRCSP2012010276

PATIENT
  Age: 50 Year
  Sex: Female

DRUGS (3)
  1. DEPON [Concomitant]
  2. ANTIVOM                            /00141802/ [Concomitant]
     Indication: DIZZINESS
  3. PROLIA [Suspect]
     Indication: OSTEOPOROSIS
     Dosage: 60 MG, Q6MO
     Dates: start: 20120214

REACTIONS (6)
  - TACHYCARDIA [None]
  - IMPAIRED WORK ABILITY [None]
  - ASTHENIA [None]
  - DISCOMFORT [None]
  - DYSPNOEA [None]
  - PAIN IN JAW [None]
